FAERS Safety Report 19989255 (Version 2)
Quarter: 2021Q4

REPORT INFORMATION
  Report Type: Spontaneous
  Country: IT (occurrence: IT)
  Receive Date: 20211025
  Receipt Date: 20211105
  Transmission Date: 20220303
  Serious: Yes (Hospitalization, Other)
  Sender: FDA-Public Use
  Company Number: IT-AUROBINDO-AUR-APL-2021-042997

PATIENT
  Age: 35 Year
  Sex: Male

DRUGS (5)
  1. ZOLPIDEM [Suspect]
     Active Substance: ZOLPIDEM TARTRATE
     Indication: Attention deficit hyperactivity disorder
     Dosage: 300 MILLIGRAM, ONCE A DAY
     Route: 048
  2. ZOLPIDEM [Suspect]
     Active Substance: ZOLPIDEM TARTRATE
     Indication: Narcissistic personality disorder
     Dosage: 10 MILLIGRAM, ONCE A DAY (BEDTIME)
     Route: 048
  3. COCAINE [Suspect]
     Active Substance: COCAINE
     Indication: Product used for unknown indication
     Dosage: UNK
     Route: 065
  4. ZOLPIDEM [Suspect]
     Active Substance: ZOLPIDEM TARTRATE
     Indication: Attention deficit hyperactivity disorder
     Dosage: 30 MILLIGRAM, ONCE A DAY
     Route: 042
  5. ZOLPIDEM [Suspect]
     Active Substance: ZOLPIDEM TARTRATE
     Indication: Narcissistic personality disorder

REACTIONS (15)
  - Psychomotor hyperactivity [Unknown]
  - Disinhibition [Unknown]
  - Drug dependence [Unknown]
  - Drug withdrawal syndrome [Unknown]
  - Irritability [Unknown]
  - Aggression [Unknown]
  - Muscle spasms [Unknown]
  - Insomnia [Unknown]
  - Myalgia [Unknown]
  - Restlessness [Unknown]
  - Euphoric mood [Unknown]
  - Intentional product misuse [Unknown]
  - Drug interaction [Unknown]
  - Rebound effect [Unknown]
  - Drug abuse [Unknown]
